FAERS Safety Report 7027555-5 (Version None)
Quarter: 2010Q4

REPORT INFORMATION
  Report Type: 
  Country: None (occurrence: None)
  Receive Date: 20101004
  Receipt Date: 20100927
  Transmission Date: 20110411
  Serious: Yes (Hospitalization)
  Sender: FDA-Public Use
  Company Number: NL-ABBOTT-10P-114-0673844-00

PATIENT
  Sex: Female

DRUGS (20)
  1. LEUPROLIDE ACETATE [Suspect]
     Indication: ENDOMETRIOSIS
     Route: 058
     Dates: start: 20090101
  2. LUCRIN DEPOT 3.75 [Suspect]
     Indication: ENDOMETRIOSIS
     Route: 058
     Dates: start: 20100902
  3. LUCRIN DEPOT 3.75 [Suspect]
     Route: 058
  4. LIVIAL [Concomitant]
     Indication: HOT FLUSH
     Route: 048
  5. ARTHROTEC [Concomitant]
     Indication: PRODUCT USED FOR UNKNOWN INDICATION
     Dosage: 1 UNIT 3 TIMES A DAY
     Route: 048
  6. CONTRALUM ULTRA [Concomitant]
     Indication: PRODUCT USED FOR UNKNOWN INDICATION
     Dosage: ACCORDING TO PRESCRIPTION - DERMAL
  7. DESLORATADINE [Concomitant]
     Indication: PRODUCT USED FOR UNKNOWN INDICATION
     Route: 048
  8. ETHINYLESTRADIO/LEVONOR GESTREL [Concomitant]
     Indication: PRODUCT USED FOR UNKNOWN INDICATION
     Dosage: 30/150 MCG
  9. FLUCLOXACIL [Concomitant]
     Indication: PRODUCT USED FOR UNKNOWN INDICATION
     Route: 048
  10. HYDROCORTISON [Concomitant]
     Indication: PRODUCT USED FOR UNKNOWN INDICATION
     Dosage: 10 MG/G; ONCE DAILY - DERMAL
  11. LEVOCABASTINE [Concomitant]
     Indication: PRODUCT USED FOR UNKNOWN INDICATION
     Dosage: 0.5MG/ML - 4ML FLASK; 1 UNIT BID
     Route: 047
  12. DUSPATAL [Concomitant]
     Indication: PRODUCT USED FOR UNKNOWN INDICATION
     Route: 048
  13. METRONIDAZOLE [Concomitant]
     Indication: PRODUCT USED FOR UNKNOWN INDICATION
  14. MOVIPREP [Concomitant]
     Indication: PRODUCT USED FOR UNKNOWN INDICATION
  15. NITROFURANTOINE [Concomitant]
     Indication: URINARY TRACT INFECTION
     Route: 048
  16. OFLOXACIN [Concomitant]
     Indication: PRODUCT USED FOR UNKNOWN INDICATION
     Route: 048
  17. RANITIDINE [Concomitant]
     Indication: PRODUCT USED FOR UNKNOWN INDICATION
     Route: 048
  18. SALICYLIC ACID VASELINE OINTMENT 20% [Concomitant]
     Indication: PRODUCT USED FOR UNKNOWN INDICATION
     Dosage: ONCE DAILY - DERMAL
  19. TRAMADOL HCL [Concomitant]
     Indication: PRODUCT USED FOR UNKNOWN INDICATION
     Route: 048
  20. OXYCODONE HCL [Concomitant]
     Indication: ENDOMETRIOSIS
     Route: 048

REACTIONS (3)
  - ABDOMINAL PAIN [None]
  - MALAISE [None]
  - WEIGHT DECREASED [None]
